FAERS Safety Report 6921357-3 (Version None)
Quarter: 2010Q3

REPORT INFORMATION
  Report Type: 
  Country: None (occurrence: None)
  Receive Date: 20100812
  Receipt Date: 20100805
  Transmission Date: 20110219
  Serious: Yes (Hospitalization, Other)
  Sender: FDA-Public Use
  Company Number: DE-CEPHALON-2010003258

PATIENT
  Sex: Female
  Weight: 85 kg

DRUGS (2)
  1. TREANDA [Suspect]
     Indication: HODGKIN'S DISEASE
     Route: 041
     Dates: start: 20100421
  2. ZOCOR [Concomitant]

REACTIONS (5)
  - BLOOD CREATINE PHOSPHOKINASE INCREASED [None]
  - DIARRHOEA [None]
  - PNEUMONITIS [None]
  - PYREXIA [None]
  - RENAL FAILURE [None]
